FAERS Safety Report 4816501-8 (Version None)
Quarter: 2005Q4

REPORT INFORMATION
  Report Type: 
  Country: None (occurrence: None)
  Receive Date: 20051028
  Receipt Date: 20050705
  Transmission Date: 20060501
  Serious: Yes (Disabling)
  Sender: FDA-Public Use
  Company Number: 2005001260

PATIENT
  Age: 76 Year
  Sex: Male
  Weight: 70.3075 kg

DRUGS (18)
  1. ERLOTINIB HCL (TABLET) [Suspect]
     Indication: NON-SMALL CELL LUNG CANCER
     Dosage: 100 MG (QD), ORAL
     Route: 048
     Dates: start: 20050303, end: 20050610
  2. PLETAL [Concomitant]
  3. QUININE SULFATE [Concomitant]
  4. PAXIL [Concomitant]
  5. AMBIEN [Concomitant]
  6. LORAZEPAM [Concomitant]
  7. VERAPAMIL [Concomitant]
  8. DIGOXIN [Concomitant]
  9. COUMADIN [Concomitant]
  10. ASPIRIN [Concomitant]
  11. GLUCOVANCE [Concomitant]
  12. LISINOPRIL [Concomitant]
  13. PROTONIX [Concomitant]
  14. CORDARONE [Concomitant]
  15. LOPERAMIDE HCL [Concomitant]
  16. LANACAINE [Concomitant]
  17. NYSTATIN [Concomitant]
  18. BENADRYL / MAALOX / XYLOCAINE [Concomitant]

REACTIONS (7)
  - CEREBRAL ATROPHY [None]
  - CEREBRAL DISORDER [None]
  - ISCHAEMIA [None]
  - MICROANGIOPATHY [None]
  - OPTIC NEURITIS [None]
  - PAPILLOEDEMA [None]
  - RED BLOOD CELL SEDIMENTATION RATE INCREASED [None]
